FAERS Safety Report 9849122 (Version 1)
Quarter: 2014Q1

REPORT INFORMATION
  Report Type: Spontaneous
  Country: IT (occurrence: None)
  Receive Date: 20140124
  Receipt Date: 20140124
  Transmission Date: 20141002
  Serious: Yes (Other)
  Sender: FDA-Public Use
  Company Number: 2014P10000566

PATIENT
  Age: 80 Year
  Sex: Male

DRUGS (8)
  1. PLAQUENIL [Suspect]
     Indication: RHEUMATOID ARTHRITIS
     Route: 048
     Dates: start: 20090401, end: 20131106
  2. ORENCIA [Suspect]
     Indication: RHEUMATOID ARTHRITIS
     Route: 042
     Dates: start: 20091101, end: 20131106
  3. VIREAD [Concomitant]
  4. XATRAL [Concomitant]
  5. PARIET [Concomitant]
  6. CARDIOASPIRIN [Concomitant]
  7. DIBASE [Concomitant]
  8. TRENTAL [Concomitant]

REACTIONS (2)
  - Transitional cell carcinoma [None]
  - Urine transitional cells present [None]
